FAERS Safety Report 13129083 (Version 1)
Quarter: 2017Q1

REPORT INFORMATION
  Report Type: Spontaneous
  Country: US (occurrence: US)
  Receive Date: 20170117
  Receipt Date: 20170117
  Transmission Date: 20170428
  Serious: Yes (Death)
  Sender: FDA-Public Use
  Company Number: None

PATIENT
  Age: 68 Year
  Sex: Male

DRUGS (4)
  1. LUPRON DEPOT [Suspect]
     Active Substance: LEUPROLIDE ACETATE
     Indication: PROSTATE CANCER
     Dosage: 30MG Q 4 MONTHS IM
     Route: 030
     Dates: start: 20150122
  2. SIMVASTATIN. [Concomitant]
     Active Substance: SIMVASTATIN
  3. AMITRIPTYLIN [Concomitant]
     Active Substance: AMITRIPTYLINE
  4. ATENOL/CHLOR [Concomitant]
     Active Substance: ATENOLOL\CHLORTHALIDONE

REACTIONS (1)
  - Death [None]
